FAERS Safety Report 10121037 (Version 6)
Quarter: 2015Q1

REPORT INFORMATION
  Report Type: Spontaneous
  Country: GB (occurrence: GB)
  Receive Date: 20140425
  Receipt Date: 20150329
  Transmission Date: 20150720
  Serious: Yes (Death, Life-Threatening, Hospitalization, Disabling, Other)
  Sender: FDA-Public Use
  Company Number: PHFR2014GB003017

PATIENT
  Age: 42 Year
  Sex: Female

DRUGS (1)
  1. CLOZARIL [Suspect]
     Active Substance: CLOZAPINE
     Indication: SCHIZOPHRENIA
     Dosage: UNK
     Route: 048
     Dates: start: 20120629

REACTIONS (8)
  - White blood cell count decreased [Unknown]
  - White blood cell count increased [Unknown]
  - Terminal state [Unknown]
  - Neutrophil count decreased [Unknown]
  - Platelet count increased [Recovered/Resolved]
  - Product use issue [Unknown]
  - Small cell lung cancer [Fatal]
  - Neutrophil count increased [Unknown]

NARRATIVE: CASE EVENT DATE: 201305
